FAERS Safety Report 9178336 (Version 1)
Quarter: 2012Q4

REPORT INFORMATION
  Report Type: 
  Country: IT (occurrence: IT)
  Receive Date: 20121029
  Receipt Date: 20121029
  Transmission Date: 20130627
  Serious: Yes (Hospitalization)
  Sender: FDA-Public Use
  Company Number: IT-TEVA-366117ISR

PATIENT
  Age: 57 None
  Sex: Male

DRUGS (3)
  1. RISPERIDONE [Suspect]
     Indication: PSYCHOTIC DISORDER
     Dosage: 3 ml Daily;
     Route: 048
     Dates: start: 20120508, end: 20120825
  2. AGOMELATINE [Suspect]
     Dosage: 25 Milligram Daily;
     Route: 048
     Dates: start: 20120714, end: 20120820
  3. DELORAZEPAM [Concomitant]

REACTIONS (1)
  - Thrombophlebitis [Unknown]
